FAERS Safety Report 16144885 (Version 1)
Quarter: 2019Q1

REPORT INFORMATION
  Report Type: Spontaneous
  Country: US (occurrence: US)
  Receive Date: 20190227
  Receipt Date: 20190227
  Transmission Date: 20190418
  Serious: No
  Sender: FDA-Public Use
  Company Number: None

PATIENT
  Age: 87 Year
  Sex: Female
  Weight: 54.43 kg

DRUGS (1)
  1. FORTEO [Suspect]
     Active Substance: TERIPARATIDE
     Indication: PATHOLOGICAL FRACTURE
     Dosage: STRENGTH 600 MCG/2.4 ML PEN INJ
     Route: 058
     Dates: start: 201809

REACTIONS (2)
  - Pain in jaw [None]
  - Tooth disorder [None]
